FAERS Safety Report 12917347 (Version 1)
Quarter: 2016Q4

REPORT INFORMATION
  Report Type: Spontaneous
  Country: IL (occurrence: IL)
  Receive Date: 20161107
  Receipt Date: 20161107
  Transmission Date: 20170207
  Serious: Yes (Life-Threatening)
  Sender: FDA-Public Use
  Company Number: IL-ASTRAZENECA-2016SF16000

PATIENT
  Age: 53 Year
  Sex: Male

DRUGS (2)
  1. BRILINTA [Suspect]
     Active Substance: TICAGRELOR
     Indication: ACUTE MYOCARDIAL INFARCTION
     Dosage: 90.0MG UNKNOWN
     Route: 048
  2. CARDILOC [Concomitant]
     Active Substance: BISOPROLOL FUMARATE

REACTIONS (2)
  - Atrioventricular block complete [Unknown]
  - Sinus bradycardia [Unknown]
